FAERS Safety Report 25213303 (Version 1)
Quarter: 2025Q2

REPORT INFORMATION
  Report Type: Report from Study
  Country: CL (occurrence: CL)
  Receive Date: 20250418
  Receipt Date: 20250418
  Transmission Date: 20250716
  Serious: Yes (Hospitalization)
  Sender: ROCHE
  Company Number: CL-ROCHE-10000256502

PATIENT
  Age: 56 Year
  Sex: Male

DRUGS (10)
  1. TECENTRIQ [Suspect]
     Active Substance: ATEZOLIZUMAB
     Indication: Hepatic cancer metastatic
     Dosage: 5 CYCLES
     Route: 042
     Dates: start: 20241113, end: 20250203
  2. AVASTIN [Suspect]
     Active Substance: BEVACIZUMAB
     Indication: Hepatic cancer metastatic
     Dosage: 5 CYCLES
     Route: 042
     Dates: start: 20241113, end: 20250203
  3. SPIRONOLACTONE [Concomitant]
     Active Substance: SPIRONOLACTONE
     Indication: Product used for unknown indication
     Route: 048
  4. FUROSEMIDE [Concomitant]
     Active Substance: FUROSEMIDE
     Indication: Product used for unknown indication
     Route: 048
  5. LACTULOSE [Concomitant]
     Active Substance: LACTULOSE
     Indication: Product used for unknown indication
     Route: 048
  6. RIFAXIMIN [Concomitant]
     Active Substance: RIFAXIMIN
     Indication: Product used for unknown indication
     Route: 048
  7. NPH INSULIN [Concomitant]
     Active Substance: INSULIN BEEF
     Indication: Product used for unknown indication
     Route: 058
  8. NPH INSULIN [Concomitant]
     Active Substance: INSULIN BEEF
     Route: 058
  9. CARVEDILOL [Concomitant]
     Active Substance: CARVEDILOL
     Indication: Product used for unknown indication
     Route: 048
  10. APIXABAN [Concomitant]
     Active Substance: APIXABAN
     Indication: Product used for unknown indication
     Route: 048

REACTIONS (7)
  - Oesophageal varices haemorrhage [Recovered/Resolved]
  - Liver injury [Recovering/Resolving]
  - Portal hypertension [Recovering/Resolving]
  - Hepatic encephalopathy [Recovered/Resolved]
  - Hepatocellular carcinoma [Recovering/Resolving]
  - Cholelithiasis [Recovering/Resolving]
  - Metabolic dysfunction-associated steatohepatitis [Recovering/Resolving]

NARRATIVE: CASE EVENT DATE: 20250304
